FAERS Safety Report 13608276 (Version 1)
Quarter: 2017Q2

REPORT INFORMATION
  Report Type: Spontaneous
  Country: US (occurrence: US)
  Receive Date: 20170602
  Receipt Date: 20170602
  Transmission Date: 20170830
  Serious: Yes (Other)
  Sender: FDA-Public Use
  Company Number: US-MALLINCKRODT-T201702210

PATIENT
  Sex: Male

DRUGS (4)
  1. OXYCODONE/APAP [Concomitant]
     Active Substance: ACETAMINOPHEN\OXYCODONE HYDROCHLORIDE
     Indication: PRODUCT USED FOR UNKNOWN INDICATION
  2. ASPIRIN. [Concomitant]
     Active Substance: ASPIRIN
     Indication: PRODUCT USED FOR UNKNOWN INDICATION
  3. H.P. ACTHAR [Suspect]
     Active Substance: CORTICOTROPIN
     Indication: EPILEPSY
     Dosage: 120 UNITS, DAILY FOR 2 WEEKS
     Route: 030
     Dates: start: 20170406
  4. XANAX [Concomitant]
     Active Substance: ALPRAZOLAM
     Indication: PRODUCT USED FOR UNKNOWN INDICATION
     Dosage: UNK

REACTIONS (1)
  - Cerebrovascular accident [Unknown]
